FAERS Safety Report 26179953 (Version 1)
Quarter: 2025Q4

REPORT INFORMATION
  Report Type: Spontaneous
  Country: US (occurrence: None)
  Receive Date: 20251219
  Receipt Date: 20251219
  Transmission Date: 20260117
  Serious: Yes (Other)
  Sender: FDA-CTU
  Company Number: None

PATIENT
  Age: 65 Year
  Sex: Male
  Weight: 83.25 kg

DRUGS (2)
  1. COSENTYX [Suspect]
     Active Substance: SECUKINUMAB
  2. VITAMINS [Concomitant]
     Active Substance: VITAMINS

REACTIONS (7)
  - Abdominal pain [None]
  - Pyrexia [None]
  - Vomiting [None]
  - Gastrointestinal motility disorder [None]
  - Weight decreased [None]
  - Headache [None]
  - Salivary gland calculus [None]

NARRATIVE: CASE EVENT DATE: 20251025
